FAERS Safety Report 21855114 (Version 2)
Quarter: 2023Q1

REPORT INFORMATION
  Report Type: Spontaneous
  Country: US (occurrence: US)
  Receive Date: 20230112
  Receipt Date: 20230113
  Transmission Date: 20230418
  Serious: Yes (Hospitalization, Other)
  Sender: FDA-Public Use
  Company Number: US-PFIZER INC-202300011224

PATIENT
  Age: 59 Year
  Sex: Female

DRUGS (3)
  1. PFIZER-BIONTECH COVID-19 VACCINE, BIVALENT [Suspect]
     Active Substance: BNT162B2 OMICRON (BA.4/BA.5)\TOZINAMERAN
     Indication: COVID-19 immunisation
     Dosage: DOSE NUMBER UNKNOWN, SINGLE
  2. PAXLOVID [Suspect]
     Active Substance: NIRMATRELVIR\RITONAVIR
     Indication: COVID-19 treatment
     Dosage: 3 DF, 2X/DAY (3 CAPLETS IN THE MORNING AND 3 CAPLETS IN THE AFTERNOON)
     Dates: start: 20221229, end: 20230102
  3. AZITHROMYCIN [Suspect]
     Active Substance: AZITHROMYCIN
     Indication: Prophylaxis
     Dosage: 500 MG, 1X/DAY
     Dates: start: 20221229, end: 20230102

REACTIONS (4)
  - Pancreatitis [Unknown]
  - Vomiting [Unknown]
  - Pain [Unknown]
  - Nausea [Unknown]

NARRATIVE: CASE EVENT DATE: 20230105
